FAERS Safety Report 8528724-5 (Version None)
Quarter: 2012Q3

REPORT INFORMATION
  Report Type: 
  Country: None (occurrence: None)
  Receive Date: 20120723
  Receipt Date: 20120711
  Transmission Date: 20120928
  Serious: No
  Sender: FDA-Public Use
  Company Number: US-BIOGENIDEC-2012BI025653

PATIENT
  Age: 50 Year
  Sex: Female

DRUGS (2)
  1. AVONEX [Suspect]
     Indication: MULTIPLE SCLEROSIS
     Route: 030
     Dates: start: 20100730
  2. AMPYRA [Concomitant]
     Indication: GAIT DISTURBANCE
     Dates: start: 20120601

REACTIONS (8)
  - BURNING SENSATION [None]
  - BALANCE DISORDER [None]
  - GAIT DISTURBANCE [None]
  - PERIARTHRITIS [None]
  - MOBILITY DECREASED [None]
  - DEPRESSION [None]
  - OROPHARYNGEAL PAIN [None]
  - BACK PAIN [None]
